FAERS Safety Report 5751674-4 (Version None)
Quarter: 2008Q2

REPORT INFORMATION
  Report Type: 
  Country: None (occurrence: None)
  Receive Date: 20080528
  Receipt Date: 20080522
  Transmission Date: 20081010
  Serious: Yes (Hospitalization, Other)
  Sender: FDA-Public Use
  Company Number: PHEH2008US04015

PATIENT
  Sex: Male

DRUGS (14)
  1. ZOMETA [Suspect]
     Dosage: 4 MG, MONTHLY
     Route: 042
     Dates: start: 20070501, end: 20080402
  2. COREG [Concomitant]
     Dosage: 6.25MG BID
  3. LISINOPRIL [Concomitant]
     Dosage: 2.5MG QD
  4. TRICOR [Concomitant]
     Dosage: 145MG BID
  5. ASPIRIN [Concomitant]
     Dosage: 81MG QD
  6. VITAMIN CAP [Concomitant]
     Dosage: QD
  7. PREVACID [Concomitant]
     Dosage: 15MG QD
  8. LASIX [Concomitant]
     Dosage: 20MG PRN
  9. KLOR-CON [Concomitant]
  10. LIPITOR [Concomitant]
     Dosage: 10MG HS
  11. VITAMIN B-12 [Concomitant]
     Dosage: 500MG BID
  12. DECADRON                                /CAN/ [Concomitant]
     Dosage: 8MG BID
  13. PREDNISONE TAB [Concomitant]
     Dosage: 10MG QAM
  14. DOCETAXEL [Concomitant]

REACTIONS (8)
  - DENTAL CARIES [None]
  - MASTICATION DISORDER [None]
  - OSTEONECROSIS [None]
  - PAIN IN JAW [None]
  - PYREXIA [None]
  - SUPERINFECTION [None]
  - SWELLING [None]
  - X-RAY ABNORMAL [None]
